FAERS Safety Report 17845003 (Version 1)
Quarter: 2020Q2

REPORT INFORMATION
  Report Type: Spontaneous
  Country: US (occurrence: US)
  Receive Date: 20200601
  Receipt Date: 20200601
  Transmission Date: 20200714
  Serious: No
  Sender: FDA-Public Use
  Company Number: US-009507513-2005USA010020

PATIENT
  Age: 26 Year
  Sex: Female
  Weight: 63.04 kg

DRUGS (1)
  1. NEXPLANON [Suspect]
     Active Substance: ETONOGESTREL
     Indication: CONTRACEPTION
     Dosage: 1 ROD PER 3 YEARS
     Route: 059
     Dates: start: 20200512

REACTIONS (3)
  - Implant site irritation [Not Recovered/Not Resolved]
  - Device placement issue [Not Recovered/Not Resolved]
  - Implant site pain [Not Recovered/Not Resolved]

NARRATIVE: CASE EVENT DATE: 20200512
